FAERS Safety Report 6211137-9 (Version None)
Quarter: 2009Q2

REPORT INFORMATION
  Report Type: 
  Country: None (occurrence: None)
  Receive Date: 20090528
  Receipt Date: 20090513
  Transmission Date: 20091009
  Serious: Yes (Other)
  Sender: FDA-Public Use
  Company Number: 2009S1008665

PATIENT
  Age: 19 Year
  Sex: Female

DRUGS (2)
  1. AMNESTEEM [Suspect]
     Dosage: 40 MG; TWICE A DAY; ORAL
     Route: 048
     Dates: start: 20081110, end: 20090401
  2. ORAL CONTRACEPTIVE NOS [Concomitant]

REACTIONS (6)
  - DRUG DOSE OMISSION [None]
  - DRUG EXPOSURE DURING PREGNANCY [None]
  - HORMONE LEVEL ABNORMAL [None]
  - INCORRECT DOSE ADMINISTERED [None]
  - PREGNANCY [None]
  - TREATMENT NONCOMPLIANCE [None]
